FAERS Safety Report 9607546 (Version 4)
Quarter: 2013Q4

REPORT INFORMATION
  Report Type: Spontaneous
  Country: FR (occurrence: FR)
  Receive Date: 20131009
  Receipt Date: 20131112
  Transmission Date: 20140711
  Serious: Yes (Death)
  Sender: FDA-Public Use
  Company Number: FR-JNJFOC-20131003767

PATIENT
  Age: 84 Year
  Sex: Female

DRUGS (4)
  1. ECONAZOLE NITRATE 1% [Suspect]
     Indication: PRODUCT USED FOR UNKNOWN INDICATION
     Route: 067
  2. WARFARIN SODIUM [Interacting]
     Indication: PRODUCT USED FOR UNKNOWN INDICATION
     Route: 065
  3. AMOXICILLIN + POTASSIUM CLAVULANATE [Concomitant]
     Route: 065
  4. OFLOXACIN [Concomitant]
     Route: 065

REACTIONS (3)
  - Pneumonia [Fatal]
  - International normalised ratio increased [Unknown]
  - Drug interaction [Unknown]
